FAERS Safety Report 8179409-9 (Version None)
Quarter: 2012Q1

REPORT INFORMATION
  Report Type: 
  Country: None (occurrence: None)
  Receive Date: 20120302
  Receipt Date: 20120227
  Transmission Date: 20120608
  Serious: Yes (Death)
  Sender: FDA-Public Use
  Company Number: CHPA2012US003760

PATIENT
  Age: 44 Year
  Sex: Female

DRUGS (8)
  1. DIPHENHYDRAMINE HCL [Suspect]
     Dosage: UNK,UNK
     Route: 048
  2. RISPERIDONE [Suspect]
     Dosage: UNK,UNK
     Route: 048
  3. AMLODIPINE [Suspect]
     Dosage: UNK,UNK
     Route: 048
  4. BUPROPION HCL [Suspect]
     Dosage: UNK,UNK
     Route: 048
  5. DRUG THERAPY NOS [Suspect]
     Dosage: UNK,UNK
     Route: 048
  6. ETHANOL [Suspect]
     Dosage: UNK,UNK
     Route: 048
  7. PROPRANOLOL [Suspect]
     Dosage: UNK,UNK
     Route: 048
  8. QUETIAPINE [Suspect]
     Dosage: UNK,UNK
     Route: 048

REACTIONS (1)
  - COMPLETED SUICIDE [None]
